FAERS Safety Report 4704282-8 (Version None)
Quarter: 2005Q2

REPORT INFORMATION
  Report Type: 
  Country: None (occurrence: None)
  Receive Date: 20050628
  Receipt Date: 20050813
  Transmission Date: 20051028
  Serious: Yes (Life-Threatening)
  Sender: FDA-Public Use
  Company Number: UA-2005-010656

PATIENT
  Age: 31 Year
  Sex: Female

DRUGS (1)
  1. YASMIN/ YARINA(DROSPIRENONE/ETHINYLESTRADIOL) FILM TABLET [Suspect]
     Indication: AMENORRHOEA
     Dosage: 1 TAB(S), 1X/DAY ORAL
     Route: 048
     Dates: start: 20050524, end: 20050609

REACTIONS (5)
  - DIZZINESS [None]
  - DRUG DOSE OMISSION [None]
  - DYSPNOEA [None]
  - LARYNGOSPASM [None]
  - WEIGHT DECREASED [None]
